FAERS Safety Report 5292166-9 (Version None)
Quarter: 2007Q2

REPORT INFORMATION
  Report Type: 
  Country: None (occurrence: None)
  Receive Date: 20070410
  Receipt Date: 20070403
  Transmission Date: 20071010
  Serious: Yes (Hospitalization)
  Sender: FDA-Public Use
  Company Number: US-AVENTIS-200713008GDDC

PATIENT
  Age: 78 Year
  Sex: Male

DRUGS (5)
  1. LANTUS [Suspect]
     Indication: DIABETES MELLITUS
     Route: 058
     Dates: start: 20070115
  2. WARFARIN SODIUM [Suspect]
     Dates: start: 20030401
  3. LIPITOR [Suspect]
     Dates: start: 20000101, end: 20070115
  4. ZETIA [Suspect]
     Dates: start: 20000101, end: 20070115
  5. HUMALOG                            /00030501/ [Suspect]
     Indication: DIABETES MELLITUS
     Route: 058

REACTIONS (3)
  - DIABETIC NEUROPATHY [None]
  - HAEMORRHAGE [None]
  - MYOSITIS [None]
